FAERS Safety Report 13592646 (Version 2)
Quarter: 2018Q3

REPORT INFORMATION
  Report Type: Spontaneous
  Country: IT (occurrence: IT)
  Receive Date: 20170530
  Receipt Date: 20180705
  Transmission Date: 20181010
  Serious: Yes (Other)
  Sender: FDA-Public Use
  Company Number: IT-TEVA-771328ACC

PATIENT
  Age: 34 Year
  Sex: Male

DRUGS (2)
  1. CLARITHROMYCIN. [Suspect]
     Active Substance: CLARITHROMYCIN
     Indication: NASOPHARYNGITIS
     Route: 048
     Dates: start: 20170503, end: 20170503
  2. FLUIMUCIL ? 600 MG GRANULATO PER SOLUZIONE ORALE [Concomitant]
     Indication: PRODUCT USED FOR UNKNOWN INDICATION
     Route: 048
     Dates: start: 20170426, end: 20170504

REACTIONS (1)
  - Palatal oedema [Recovering/Resolving]

NARRATIVE: CASE EVENT DATE: 20170504
